FAERS Safety Report 4370254-9 (Version None)
Quarter: 2004Q2

REPORT INFORMATION
  Report Type: 
  Country: None (occurrence: None)
  Receive Date: 20040603
  Receipt Date: 20040330
  Transmission Date: 20050107
  Serious: Yes (Hospitalization)
  Sender: FDA-Public Use
  Company Number: US-BRISTOL-MYERS SQUIBB COMPANY-12545836

PATIENT
  Age: 9 Year
  Sex: Male
  Weight: 45 kg

DRUGS (4)
  1. ABILIFY [Suspect]
     Indication: ATTENTION DEFICIT/HYPERACTIVITY DISORDER
     Route: 048
     Dates: start: 20040309
  2. ABILIFY [Suspect]
     Indication: AFFECTIVE DISORDER
     Route: 048
     Dates: start: 20040309
  3. ABILIFY [Suspect]
     Indication: IMPULSIVE BEHAVIOUR
     Route: 048
     Dates: start: 20040309
  4. ABILIFY [Suspect]
     Indication: AGGRESSION
     Route: 048
     Dates: start: 20040309

REACTIONS (1)
  - NEUROLEPTIC MALIGNANT SYNDROME [None]
